FAERS Safety Report 6259529-6 (Version None)
Quarter: 2009Q3

REPORT INFORMATION
  Report Type: 
  Country: None (occurrence: None)
  Receive Date: 20090708
  Receipt Date: 20090626
  Transmission Date: 20100115
  Serious: Yes (Life-Threatening, Other)
  Sender: FDA-Public Use
  Company Number: GB-RANBAXY-2009RR-25386

PATIENT
  Age: 37 Year
  Sex: Female
  Weight: 102 kg

DRUGS (5)
  1. RANITIDINE [Suspect]
     Indication: PROPHYLAXIS
     Dosage: 50 MG, SINGLE
     Route: 042
     Dates: start: 20090608, end: 20090608
  2. CITALOPRAM HYDROBROMIDE [Concomitant]
     Dosage: 20 MG, UNK
     Route: 048
  3. HYDROCORTISONE [Concomitant]
     Indication: PSORIASIS
     Dosage: 1 DF, PRN
     Route: 061
  4. LANTUS [Concomitant]
     Indication: GESTATIONAL DIABETES
     Dosage: 20 IU, UNK
     Route: 058
  5. NOVORAPID [Concomitant]
     Indication: GESTATIONAL DIABETES
     Dosage: UNK
     Route: 058

REACTIONS (5)
  - DYSPHONIA [None]
  - OBSTRUCTIVE AIRWAYS DISORDER [None]
  - RHINORRHOEA [None]
  - SENSATION OF FOREIGN BODY [None]
  - SNEEZING [None]
